FAERS Safety Report 19458817 (Version 1)
Quarter: 2021Q2

REPORT INFORMATION
  Report Type: Spontaneous
  Country: US (occurrence: US)
  Receive Date: 20210624
  Receipt Date: 20210624
  Transmission Date: 20210717
  Serious: Yes (Hospitalization)
  Sender: FDA-Public Use
  Company Number: None

PATIENT
  Age: 54 Year
  Sex: Female

DRUGS (1)
  1. BOSENTAN 125 MG TABLETS 60/BO (TEVA): [Suspect]
     Active Substance: BOSENTAN
     Indication: PULMONARY HYPERTENSION
     Route: 048
     Dates: start: 20190610

REACTIONS (2)
  - Staphylococcal infection [None]
  - Vascular device infection [None]

NARRATIVE: CASE EVENT DATE: 20210617
